FAERS Safety Report 7484189-6 (Version None)
Quarter: 2011Q2

REPORT INFORMATION
  Report Type: 
  Country: None (occurrence: None)
  Receive Date: 20110509
  Receipt Date: 20110428
  Transmission Date: 20111010
  Serious: Yes (Congenital Anomaly, Other)
  Sender: FDA-Public Use
  Company Number: GB-ACCORD-008889

PATIENT

DRUGS (4)
  1. CYCLOPHOSPHAMIDE [Suspect]
     Dosage: 500.00MG/M2, TRANSPLACENTAL
     Route: 064
  2. PACLITAXEL [Suspect]
     Dosage: TRANSPLACENTAL
     Route: 064
  3. DOXORUBICIN HCL [Suspect]
     Dosage: 500.00 MG-1.00 TIMES, PER-72, HOURS, TRANSPLACENTAL
     Route: 062
  4. DOCETAXEL [Suspect]

REACTIONS (2)
  - PYLORIC STENOSIS [None]
  - MATERNAL DRUGS AFFECTING FOETUS [None]
